FAERS Safety Report 12823417 (Version 2)
Quarter: 2017Q1

REPORT INFORMATION
  Report Type: Report from Study
  Country: JP (occurrence: JP)
  Receive Date: 20161007
  Receipt Date: 20170116
  Transmission Date: 20170428
  Serious: Yes (Other)
  Sender: FDA-Public Use
  Company Number: JP-ASTELLAS-2010JP005797

PATIENT
  Age: 26 Year
  Sex: Male
  Weight: 61 kg

DRUGS (50)
  1. TACROLIMUS. [Suspect]
     Active Substance: TACROLIMUS
     Indication: LUPUS NEPHRITIS
     Route: 048
     Dates: start: 20070424, end: 20070627
  2. PREDNISOLONE. [Suspect]
     Active Substance: PREDNISOLONE
     Indication: LUPUS NEPHRITIS
     Route: 048
     Dates: end: 20070926
  3. PREDNISOLONE. [Suspect]
     Active Substance: PREDNISOLONE
     Route: 048
     Dates: start: 20140107, end: 20140518
  4. PREDNISOLONE. [Suspect]
     Active Substance: PREDNISOLONE
     Route: 048
     Dates: start: 20141204, end: 20150308
  5. PREDNISOLONE. [Suspect]
     Active Substance: PREDNISOLONE
     Route: 048
     Dates: start: 20160224
  6. GASTER [Concomitant]
     Active Substance: FAMOTIDINE
     Indication: PROPHYLAXIS
     Route: 048
     Dates: end: 20080723
  7. BUFFERIN [Concomitant]
     Active Substance: ASPIRIN
     Indication: LUPUS NEPHRITIS
     Route: 048
     Dates: end: 20110324
  8. TAKEPRON [Concomitant]
     Active Substance: LANSOPRAZOLE
     Indication: PROPHYLAXIS
     Route: 048
     Dates: start: 20080724
  9. BONALON [Concomitant]
     Active Substance: ALENDRONATE SODIUM
     Indication: OSTEOPOROSIS
     Route: 048
  10. ASTOMIN                            /00426502/ [Concomitant]
     Active Substance: DIMEMORFAN PHOSPHATE
     Indication: BRONCHITIS
     Route: 048
     Dates: start: 20080807, end: 20080811
  11. LOXONIN [Concomitant]
     Active Substance: LOXOPROFEN SODIUM
     Indication: ARTHRITIS
     Route: 048
     Dates: start: 20120118
  12. LOXONIN [Concomitant]
     Active Substance: LOXOPROFEN SODIUM
     Route: 048
     Dates: end: 20130730
  13. AMBROXOL [Concomitant]
     Active Substance: AMBROXOL
     Indication: UPPER RESPIRATORY TRACT INFLAMMATION
     Route: 048
     Dates: start: 20160112, end: 20160116
  14. PREDNISOLONE. [Suspect]
     Active Substance: PREDNISOLONE
     Route: 048
     Dates: start: 20080925, end: 20081224
  15. PREDNISOLONE. [Suspect]
     Active Substance: PREDNISOLONE
     Route: 048
     Dates: start: 20090724, end: 20091224
  16. PREDNISOLONE. [Suspect]
     Active Substance: PREDNISOLONE
     Route: 048
     Dates: start: 20140519, end: 20140706
  17. PREDNISOLONE. [Suspect]
     Active Substance: PREDNISOLONE
     Route: 048
     Dates: start: 20140707, end: 20140907
  18. PREDNISOLONE. [Suspect]
     Active Substance: PREDNISOLONE
     Route: 048
     Dates: start: 20150910, end: 20160203
  19. ASTOMIN                            /00426502/ [Concomitant]
     Active Substance: DIMEMORFAN PHOSPHATE
     Route: 048
     Dates: start: 20160112, end: 20160116
  20. BAYASPIRIN [Concomitant]
     Active Substance: ASPIRIN
     Indication: PROPHYLAXIS
  21. LOXOPROFEN [Concomitant]
     Active Substance: LOXOPROFEN
     Indication: ARTHRALGIA
     Route: 048
     Dates: start: 20150608, end: 20150807
  22. LEVOFLOXACIN. [Concomitant]
     Active Substance: LEVOFLOXACIN
     Indication: UPPER RESPIRATORY TRACT INFLAMMATION
     Route: 048
     Dates: start: 20160112, end: 20160116
  23. TACROLIMUS. [Suspect]
     Active Substance: TACROLIMUS
     Route: 048
     Dates: start: 20070927
  24. PREDNISOLONE. [Suspect]
     Active Substance: PREDNISOLONE
     Indication: SYSTEMIC LUPUS ERYTHEMATOSUS
     Route: 048
     Dates: start: 20080124, end: 20080423
  25. PREDNISOLONE. [Suspect]
     Active Substance: PREDNISOLONE
     Route: 048
     Dates: start: 20090326, end: 20090723
  26. PREDNISOLONE. [Suspect]
     Active Substance: PREDNISOLONE
     Route: 048
     Dates: start: 20091225, end: 20120117
  27. PREDNISOLONE. [Suspect]
     Active Substance: PREDNISOLONE
     Route: 048
     Dates: start: 20131024, end: 20131118
  28. PL [Concomitant]
     Active Substance: ACETAMINOPHEN\CAFFEINE\PROMETHAZINE\SALICYLAMIDE
     Indication: BRONCHITIS
     Route: 048
     Dates: start: 20080807, end: 20080811
  29. TACROLIMUS. [Suspect]
     Active Substance: TACROLIMUS
     Route: 048
     Dates: start: 20070628, end: 20070926
  30. PREDNISOLONE. [Suspect]
     Active Substance: PREDNISOLONE
     Route: 048
     Dates: start: 20081225, end: 20090325
  31. PREDNISOLONE. [Suspect]
     Active Substance: PREDNISOLONE
     Route: 048
     Dates: start: 20130731, end: 20131023
  32. MUCOSOLVAN [Concomitant]
     Active Substance: AMBROXOL HYDROCHLORIDE
     Indication: BRONCHITIS
     Route: 048
     Dates: start: 20080807, end: 20080811
  33. LANSOPRAZOLE. [Concomitant]
     Active Substance: LANSOPRAZOLE
     Indication: PROPHYLAXIS
     Route: 048
  34. PREDNISOLONE. [Suspect]
     Active Substance: PREDNISOLONE
     Indication: ARTHRITIS
     Route: 048
     Dates: start: 20070927, end: 20080123
  35. PREDNISOLONE. [Suspect]
     Active Substance: PREDNISOLONE
     Route: 048
     Dates: start: 20140908, end: 20141203
  36. PREDNISOLONE. [Suspect]
     Active Substance: PREDNISOLONE
     Route: 048
     Dates: start: 20150309, end: 20150909
  37. PREDNISOLONE. [Suspect]
     Active Substance: PREDNISOLONE
     Route: 048
     Dates: start: 20160204, end: 20160223
  38. URINORM [Concomitant]
     Active Substance: BENZBROMARONE
     Indication: PRODUCT USED FOR UNKNOWN INDICATION
     Route: 048
  39. BAYASPIRIN [Concomitant]
     Active Substance: ASPIRIN
     Indication: LUPUS NEPHRITIS
     Route: 048
     Dates: start: 20110325
  40. MOBIC [Concomitant]
     Active Substance: MELOXICAM
     Indication: ARTHRALGIA
     Route: 048
     Dates: start: 20150608, end: 20150705
  41. PREDNISOLONE. [Suspect]
     Active Substance: PREDNISOLONE
     Route: 048
     Dates: start: 20120118, end: 20130730
  42. PREDNISOLONE. [Suspect]
     Active Substance: PREDNISOLONE
     Route: 048
     Dates: start: 20131204, end: 20131217
  43. PREDNISOLONE. [Suspect]
     Active Substance: PREDNISOLONE
     Route: 048
     Dates: start: 20131218, end: 20140106
  44. TOWATHIEM [Concomitant]
     Indication: UPPER RESPIRATORY TRACT INFLAMMATION
     Route: 048
     Dates: start: 20160112, end: 20160116
  45. PREDNISOLONE. [Suspect]
     Active Substance: PREDNISOLONE
     Route: 048
     Dates: start: 20080424, end: 20080924
  46. PREDNISOLONE. [Suspect]
     Active Substance: PREDNISOLONE
     Route: 048
     Dates: start: 20131119, end: 20131203
  47. BUFFERIN [Concomitant]
     Active Substance: ASPIRIN
     Indication: PROPHYLAXIS
  48. BONALON [Concomitant]
     Active Substance: ALENDRONATE SODIUM
     Indication: PROPHYLAXIS
  49. CRAVIT [Concomitant]
     Active Substance: LEVOFLOXACIN
     Indication: BRONCHITIS
     Route: 048
     Dates: start: 20080807, end: 20080811
  50. ALENDRONATE [Concomitant]
     Active Substance: ALENDRONATE SODIUM
     Indication: PROPHYLAXIS
     Route: 048

REACTIONS (4)
  - Arthritis [Recovering/Resolving]
  - Bronchitis [Recovered/Resolved]
  - Arthralgia [Recovered/Resolved]
  - Upper respiratory tract inflammation [Recovered/Resolved]

NARRATIVE: CASE EVENT DATE: 20080807
